FAERS Safety Report 5056819-X (Version None)
Quarter: 2006Q2

REPORT INFORMATION
  Report Type: 
  Country: None (occurrence: None)
  Receive Date: 20060619
  Receipt Date: 20050527
  Transmission Date: 20061013
  Serious: Yes (Life-Threatening, Hospitalization, Disabling)
  Sender: FDA-Public Use
  Company Number: WAES 0505USA03322

PATIENT
  Age: 76 Year
  Sex: Male

DRUGS (7)
  1. COZAAR [Suspect]
     Indication: HYPERTENSION
     Dosage: 100 MG/DAILY/PO
     Route: 048
  2. ATIVAN [Concomitant]
  3. COUMADIN [Concomitant]
  4. CRESTOR [Concomitant]
  5. NORVASC [Concomitant]
  6. (THERAPY UNSPECIFIED) [Concomitant]
  7. SODIUM BICARBONATE [Concomitant]

REACTIONS (2)
  - CEREBROVASCULAR ACCIDENT [None]
  - EYE DISORDER [None]
